FAERS Safety Report 25858893 (Version 2)
Quarter: 2025Q4

REPORT INFORMATION
  Report Type: Other
  Country: US (occurrence: US)
  Receive Date: 20250929
  Receipt Date: 20251018
  Transmission Date: 20260118
  Serious: No
  Sender: TRAVERE THERAPEUTICS
  Company Number: US-TRAVERE-2025TVT01474

PATIENT
  Sex: Female

DRUGS (3)
  1. FILSPARI [Suspect]
     Active Substance: SPARSENTAN
     Indication: Product used for unknown indication
     Route: 048
  2. FILSPARI [Suspect]
     Active Substance: SPARSENTAN
     Dosage: 400MG
     Route: 048
  3. FILSPARI [Suspect]
     Active Substance: SPARSENTAN
     Route: 048

REACTIONS (2)
  - Fatigue [Unknown]
  - Dizziness [Unknown]
